FAERS Safety Report 8509415-3 (Version None)
Quarter: 2012Q3

REPORT INFORMATION
  Report Type: 
  Country: None (occurrence: None)
  Receive Date: 20120713
  Receipt Date: 20120706
  Transmission Date: 20120928
  Serious: Yes (Death)
  Sender: FDA-Public Use
  Company Number: PL-CELGENEUS-129-50794-12070552

PATIENT
  Age: 77 Year
  Sex: Male

DRUGS (1)
  1. VIDAZA [Suspect]
     Route: 065
     Dates: end: 20120611

REACTIONS (1)
  - PNEUMONIA [None]
